FAERS Safety Report 5907942-6 (Version None)
Quarter: 2008Q4

REPORT INFORMATION
  Report Type: 
  Country: None (occurrence: None)
  Receive Date: 20081003
  Receipt Date: 20080926
  Transmission Date: 20090506
  Serious: Yes (Other)
  Sender: FDA-Public Use
  Company Number: JP-PFIZER INC-2008073398

PATIENT
  Age: 76 Year
  Sex: Male

DRUGS (6)
  1. LIPITOR [Suspect]
     Indication: BLOOD CHOLESTEROL INCREASED
     Route: 048
     Dates: start: 20051013, end: 20051029
  2. DEPAS [Concomitant]
     Route: 048
  3. BLOPRESS [Concomitant]
     Route: 048
     Dates: end: 20060127
  4. ULGUT [Concomitant]
     Route: 048
     Dates: end: 20060127
  5. BIOFERMIN [Concomitant]
     Route: 048
     Dates: end: 20060127
  6. METHYL SALICYLATE OINTMENT COMPOUND [Concomitant]
     Route: 061

REACTIONS (1)
  - PAIN [None]
